FAERS Safety Report 8027216-X (Version None)
Quarter: 2012Q1

REPORT INFORMATION
  Report Type: 
  Country: None (occurrence: None)
  Receive Date: 20120104
  Receipt Date: 20111220
  Transmission Date: 20120608
  Serious: Yes (Hospitalization)
  Sender: FDA-Public Use
  Company Number: TCI2011A06758

PATIENT
  Age: 73 Year
  Sex: Female

DRUGS (3)
  1. LANSOPRAZOLE [Suspect]
     Route: 048
  2. WARFARIN (WARFARIN POTASSIUM) [Concomitant]
  3. ASPIRIN [Concomitant]

REACTIONS (10)
  - HAEMATOCHEZIA [None]
  - MALAISE [None]
  - COLITIS MICROSCOPIC [None]
  - GASTROENTERITIS ESCHERICHIA COLI [None]
  - DIARRHOEA [None]
  - GASTROINTESTINAL EROSION [None]
  - GASTROINTESTINAL OEDEMA [None]
  - HYPOALBUMINAEMIA [None]
  - OEDEMA PERIPHERAL [None]
  - GASTROINTESTINAL INFLAMMATION [None]
